FAERS Safety Report 5888031-6 (Version None)
Quarter: 2008Q3

REPORT INFORMATION
  Report Type: 
  Country: None (occurrence: None)
  Receive Date: 20080918
  Receipt Date: 20080909
  Transmission Date: 20090109
  Serious: Yes (Hospitalization)
  Sender: FDA-Public Use
  Company Number: DE-ROCHE-585809

PATIENT

DRUGS (3)
  1. XELODA [Suspect]
     Route: 065
  2. AVASTIN [Suspect]
     Route: 065
  3. OXALIPLATIN [Suspect]
     Route: 065

REACTIONS (2)
  - NEUTROPHIL COUNT INCREASED [None]
  - PYREXIA [None]
